FAERS Safety Report 8108869-4 (Version None)
Quarter: 2012Q1

REPORT INFORMATION
  Report Type: 
  Country: None (occurrence: None)
  Receive Date: 20120202
  Receipt Date: 20120126
  Transmission Date: 20120608
  Serious: Yes (Other)
  Sender: FDA-Public Use
  Company Number: US-GLAXOSMITHKLINE-A0946620A

PATIENT
  Age: 49 Year
  Sex: Male

DRUGS (2)
  1. HYDROCHLOROTHIAZIDE [Concomitant]
  2. LOVAZA [Suspect]
     Indication: BLOOD TRIGLYCERIDES INCREASED
     Dosage: 1G TWICE PER DAY
     Route: 048
     Dates: start: 20110909, end: 20110930

REACTIONS (6)
  - DISCOMFORT [None]
  - NAUSEA [None]
  - DIZZINESS [None]
  - DIARRHOEA [None]
  - HAEMATOCHEZIA [None]
  - ANORECTAL DISCOMFORT [None]
